FAERS Safety Report 6565947-9 (Version None)
Quarter: 2010Q1

REPORT INFORMATION
  Report Type: 
  Country: None (occurrence: None)
  Receive Date: 20100129
  Receipt Date: 20100129
  Transmission Date: 20100710
  Serious: Yes (Hospitalization, Other)
  Sender: FDA-Public Use
  Company Number: None

PATIENT
  Sex: Female
  Weight: 58.0604 kg

DRUGS (2)
  1. CYMBALTA [Suspect]
     Indication: ANXIETY
     Dosage: 60 MG DAILY PO 3 ALMOST 4 YEARS
     Route: 048
     Dates: start: 20060101, end: 20100116
  2. CYMBALTA [Suspect]
     Indication: OBSESSIVE-COMPULSIVE DISORDER
     Dosage: 60 MG DAILY PO 3 ALMOST 4 YEARS
     Route: 048
     Dates: start: 20060101, end: 20100116

REACTIONS (11)
  - ABDOMINAL PAIN [None]
  - CHROMATURIA [None]
  - DEPRESSED MOOD [None]
  - DRUG TOXICITY [None]
  - LIVER DISORDER [None]
  - LIVER FUNCTION TEST ABNORMAL [None]
  - NAUSEA [None]
  - PAIN [None]
  - PHYTOTHERAPY [None]
  - PRURITUS [None]
  - VOMITING [None]
